FAERS Safety Report 23778406 (Version 1)
Quarter: 2024Q2

REPORT INFORMATION
  Report Type: Report from Study
  Country: AT (occurrence: AT)
  Receive Date: 20240424
  Receipt Date: 20240424
  Transmission Date: 20240716
  Serious: Yes (Other)
  Sender: FDA-Public Use
  Company Number: AT-SA-SAC20231027001783

PATIENT
  Age: 30 Year
  Sex: Female

DRUGS (2)
  1. ALEMTUZUMAB [Suspect]
     Active Substance: ALEMTUZUMAB
     Dosage: UNK
     Route: 065
     Dates: start: 20181017
  2. ALEMTUZUMAB [Suspect]
     Active Substance: ALEMTUZUMAB
     Dosage: UNK
     Route: 065
     Dates: start: 20220701

REACTIONS (5)
  - Hypothyroidism [Not Recovered/Not Resolved]
  - Autoimmune thyroiditis [Not Recovered/Not Resolved]
  - Autoimmune thyroid disorder [Not Recovered/Not Resolved]
  - Myositis [Not Recovered/Not Resolved]
  - Autoimmune myositis [Not Recovered/Not Resolved]

NARRATIVE: CASE EVENT DATE: 20220701
